FAERS Safety Report 15293657 (Version 1)
Quarter: 2018Q3

REPORT INFORMATION
  Report Type: Spontaneous
  Country: US (occurrence: US)
  Receive Date: 20180807
  Receipt Date: 20180807
  Transmission Date: 20181010
  Serious: Yes (Disabling)
  Sender: FDA-Public Use
  Company Number: None

PATIENT
  Age: 62 Year
  Sex: Female
  Weight: 108 kg

DRUGS (7)
  1. GABAPENTIN. [Concomitant]
     Active Substance: GABAPENTIN
  2. FISH OIL (OMEGA 3) [Concomitant]
  3. LEVOFLOXACIN 500 MG TABLET, GENERIC FOR LEVAQUIN 500 MG TABLET [Suspect]
     Active Substance: LEVOFLOXACIN
     Indication: BACTERIAL INFECTION
     Dosage: ?          QUANTITY:5 TABLET(S);?
     Route: 048
     Dates: start: 20180802, end: 20180806
  4. LEVOFLOXACIN 500 MG TABLET, GENERIC FOR LEVAQUIN 500 MG TABLET [Suspect]
     Active Substance: LEVOFLOXACIN
     Indication: CYSTITIS
     Dosage: ?          QUANTITY:5 TABLET(S);?
     Route: 048
     Dates: start: 20180802, end: 20180806
  5. CPAP [Concomitant]
     Active Substance: DEVICE
  6. ALKALINE WATER [Concomitant]
  7. VITAMIN D3 [Concomitant]
     Active Substance: CHOLECALCIFEROL

REACTIONS (2)
  - Tendon pain [None]
  - Pain in extremity [None]

NARRATIVE: CASE EVENT DATE: 20180805
